FAERS Safety Report 23578137 (Version 1)
Quarter: 2024Q1

REPORT INFORMATION
  Report Type: Report from Study
  Country: DE (occurrence: DE)
  Receive Date: 20240229
  Receipt Date: 20240229
  Transmission Date: 20240410
  Serious: Yes (Hospitalization, Other)
  Sender: FDA-Public Use
  Company Number: None

PATIENT
  Age: 74 Year
  Sex: Female
  Weight: 74 kg

DRUGS (11)
  1. ANASTROZOLE [Suspect]
     Active Substance: ANASTROZOLE
     Indication: Hormone receptor positive HER2 negative breast cancer
     Dosage: 1 MG, QD
     Dates: start: 20200612
  2. ZOLEDRONIC ACID [Suspect]
     Active Substance: ZOLEDRONIC ACID
     Indication: Metastasis
     Dosage: Q4W (EVERY 4 WEEKS)
     Dates: start: 20201106, end: 20210621
  3. XGEVA [Suspect]
     Active Substance: DENOSUMAB
     Indication: Product used for unknown indication
     Dosage: UNK
     Dates: start: 20210820
  4. RIBOCICLIB [Suspect]
     Active Substance: RIBOCICLIB
     Indication: Breast cancer metastatic
     Dosage: 600 MG QD (DAILY DOSE) (SCHEMA 21 DAYS INTAKE, 7 DAYS PAUSE)
     Dates: start: 20211010, end: 20211017
  5. METFORMIN [Concomitant]
     Active Substance: METFORMIN HYDROCHLORIDE
     Indication: Product used for unknown indication
     Dosage: UNK
  6. BISOPROLOL [Concomitant]
     Active Substance: BISOPROLOL\BISOPROLOL FUMARATE
     Indication: Product used for unknown indication
     Dosage: UNK
  7. GLIMEPIRIDE [Concomitant]
     Active Substance: GLIMEPIRIDE
     Indication: Product used for unknown indication
     Dosage: UNK
  8. ZOLEDRONIC ACID [Concomitant]
     Active Substance: ZOLEDRONIC ACID
     Indication: Product used for unknown indication
     Dosage: UNK
     Dates: end: 20210601
  9. AMLODIPINE BESYLATE [Concomitant]
     Active Substance: AMLODIPINE BESYLATE
     Indication: Product used for unknown indication
     Dosage: UNK
  10. ZOLEDRONIC ACID [Suspect]
     Active Substance: ZOLEDRONIC ACID
     Indication: Metastasis
     Dosage: UNK
     Dates: start: 20210601
  11. ANASTROZOLE [Suspect]
     Active Substance: ANASTROZOLE
     Indication: Hormone receptor positive HER2 negative breast cancer
     Dosage: 1 MG, QD
     Dates: start: 20200612, end: 20230216

REACTIONS (5)
  - Renal impairment [Recovering/Resolving]
  - Renal failure [Recovering/Resolving]
  - Dehydration [Recovering/Resolving]
  - Osteonecrosis [Recovering/Resolving]
  - Anaemia [Not Recovered/Not Resolved]

NARRATIVE: CASE EVENT DATE: 20210611
